FAERS Safety Report 19686623 (Version 2)
Quarter: 2021Q3

REPORT INFORMATION
  Report Type: Spontaneous
  Country: JP (occurrence: JP)
  Receive Date: 20210811
  Receipt Date: 20210820
  Transmission Date: 20211014
  Serious: Yes (Other)
  Sender: FDA-Public Use
  Company Number: JP-ABBVIE-21P-087-4034547-00

PATIENT
  Sex: Female

DRUGS (1)
  1. LEUPRORELIN [Suspect]
     Active Substance: LEUPROLIDE ACETATE
     Indication: UTERINE LEIOMYOMA
     Dosage: UNK
     Route: 065

REACTIONS (7)
  - Arthralgia [Unknown]
  - Dizziness [Unknown]
  - Hot flush [Unknown]
  - Insomnia [Unknown]
  - Feeling cold [Unknown]
  - Genital haemorrhage [Unknown]
  - Heavy menstrual bleeding [Unknown]
